FAERS Safety Report 12045320 (Version 1)
Quarter: 2016Q1

REPORT INFORMATION
  Report Type: Spontaneous
  Country: DE (occurrence: DE)
  Receive Date: 20160208
  Receipt Date: 20160208
  Transmission Date: 20160526
  Serious: Yes (Hospitalization)
  Sender: FDA-Public Use
  Company Number: DE-GILEAD-2016-0196569

PATIENT
  Age: 62 Year
  Sex: Female

DRUGS (8)
  1. RANOLAZINE [Suspect]
     Active Substance: RANOLAZINE
     Dosage: 375 UNK, UNK
     Route: 048
     Dates: start: 20150831, end: 20150921
  2. AMLODIPINE [Concomitant]
     Active Substance: AMLODIPINE BESYLATE
     Indication: ANGINA PECTORIS
     Dosage: 2.5 MG, BID
     Dates: start: 20131004
  3. RAMILICH [Concomitant]
     Active Substance: RAMIPRIL
     Indication: ANGINA PECTORIS
  4. IBUPROFEN. [Concomitant]
     Active Substance: IBUPROFEN
     Dosage: 600 MG, FROM TIME TO TIME
  5. RANOLAZINE [Suspect]
     Active Substance: RANOLAZINE
     Dosage: 500 MG, BID
     Route: 048
     Dates: start: 201311, end: 20140724
  6. RAMILICH [Concomitant]
     Active Substance: RAMIPRIL
     Indication: PRINZMETAL ANGINA
     Dosage: 2.5 MG, QD
     Dates: start: 20131004
  7. FUROSEMIDE. [Concomitant]
     Active Substance: FUROSEMIDE
     Indication: OEDEMA
     Dosage: 20 MG EVERY OTHER DAY
     Dates: start: 20120925
  8. RANOLAZINE [Suspect]
     Active Substance: RANOLAZINE
     Indication: PRINZMETAL ANGINA
     Dosage: 375 MG, BID
     Route: 048
     Dates: start: 20131018, end: 201311

REACTIONS (2)
  - Transaminases increased [Recovered/Resolved]
  - Off label use [Recovered/Resolved]

NARRATIVE: CASE EVENT DATE: 201507
